FAERS Safety Report 16013860 (Version 2)
Quarter: 2019Q1

REPORT INFORMATION
  Report Type: Spontaneous
  Country: US (occurrence: US)
  Receive Date: 20190227
  Receipt Date: 20190301
  Transmission Date: 20190418
  Serious: Yes (Other)
  Sender: FDA-Public Use
  Company Number: US-SA-2019SA054083

PATIENT
  Age: 86 Year
  Sex: Female

DRUGS (4)
  1. ELIQUIS [Suspect]
     Active Substance: APIXABAN
     Dosage: 2.5 MG, UNK
     Route: 048
  2. ASPIRINA [Concomitant]
     Active Substance: ASPIRIN
     Dosage: UNK UNK, UNK
  3. PLAVIX [Suspect]
     Active Substance: CLOPIDOGREL BISULFATE
     Dosage: UNK, UNK
  4. ELIQUIS [Suspect]
     Active Substance: APIXABAN
     Dosage: 5 UNK, BID

REACTIONS (1)
  - Gastrointestinal haemorrhage [Recovering/Resolving]
